FAERS Safety Report 5008986-1 (Version None)
Quarter: 2006Q2

REPORT INFORMATION
  Report Type: 
  Country: None (occurrence: None)
  Receive Date: 20060519
  Receipt Date: 20060515
  Transmission Date: 20061013
  Serious: Yes (Hospitalization)
  Sender: FDA-Public Use
  Company Number: 2006-05-1156

PATIENT
  Sex: Male

DRUGS (1)
  1. ALBUTEROL SULFATE AUTOHALER [Suspect]
     Dosage: 4 PUFFS QID ORAL AER INH
     Route: 055

REACTIONS (5)
  - AGEUSIA [None]
  - HEADACHE [None]
  - HEART RATE INCREASED [None]
  - NECK PAIN [None]
  - TREMOR [None]
